FAERS Safety Report 4759702-X (Version None)
Quarter: 2005Q3

REPORT INFORMATION
  Report Type: 
  Country: None (occurrence: None)
  Receive Date: 20050826
  Receipt Date: 20050502
  Transmission Date: 20060218
  Serious: No
  Sender: FDA-Public Use
  Company Number: 214161

PATIENT

DRUGS (1)
  1. RAPTIVA(EFALIZUMAB) PWDR + SOLN, 125 MG [Suspect]

REACTIONS (1)
  - OEDEMA PERIPHERAL [None]
